FAERS Safety Report 8458614-8 (Version None)
Quarter: 2012Q2

REPORT INFORMATION
  Report Type: 
  Country: None (occurrence: None)
  Receive Date: 20120622
  Receipt Date: 20120615
  Transmission Date: 20120825
  Serious: Yes (Hospitalization)
  Sender: FDA-Public Use
  Company Number: US-NOVOPROD-353927

PATIENT
  Age: 14 Year
  Sex: Male
  Weight: 42.177 kg

DRUGS (2)
  1. NORDITROPIN FLEXPRO [Suspect]
     Dosage: 1.6 MG, QD
     Route: 058
     Dates: start: 20111101
  2. NORDITROPIN FLEXPRO [Suspect]
     Indication: GROWTH HORMONE DEFICIENCY
     Dosage: 1.6 MG, QD
     Route: 058
     Dates: start: 20110701, end: 20111001

REACTIONS (3)
  - RENAL CYST [None]
  - DIARRHOEA [None]
  - DEHYDRATION [None]
